FAERS Safety Report 7576695-0 (Version None)
Quarter: 2011Q2

REPORT INFORMATION
  Report Type: 
  Country: None (occurrence: None)
  Receive Date: 20110628
  Receipt Date: 20100430
  Transmission Date: 20111010
  Serious: Yes (Other)
  Sender: FDA-Public Use
  Company Number: US-BAYER-200921116NA

PATIENT
  Sex: Male
  Weight: 99.773 kg

DRUGS (40)
  1. PRAVACHOL [Concomitant]
     Dosage: 20 MG, HS
  2. COLACE [Concomitant]
  3. PAXIL [Concomitant]
  4. FOSRENOL [Concomitant]
     Indication: BLOOD PHOSPHORUS ABNORMAL
     Dosage: 1000 MG, TID
     Route: 048
     Dates: end: 20010128
  5. MAGNEVIST [Suspect]
     Indication: ANGIOGRAM
     Dosage: 40 ML,
     Dates: start: 20021202, end: 20021202
  6. COUMADIN [Concomitant]
     Indication: COAGULOPATHY
     Dosage: 5 MG, UNK
     Route: 048
     Dates: start: 20030101, end: 20090101
  7. ALLOPURINOL [Concomitant]
  8. LABETALOL HCL [Concomitant]
     Dosage: 300 MG, BID
  9. ULTRAVIST 150 [Concomitant]
     Dosage: UNK
     Dates: start: 20030622, end: 20030622
  10. OMNISCAN [Suspect]
     Indication: NUCLEAR MAGNETIC RESONANCE IMAGING
  11. PREDNISONE [Concomitant]
     Indication: TRANSPLANT
     Dosage: UNK
     Dates: start: 19990101, end: 20020101
  12. CARDIZEM [Concomitant]
     Indication: HYPERTENSION
     Dosage: 240 MG DAILY
     Dates: start: 20020101, end: 20030101
  13. PROHANCE [Suspect]
     Indication: NUCLEAR MAGNETIC RESONANCE IMAGING
  14. GADOLINIUM IN UNSPECIFIED DRUG [Suspect]
     Dosage: UNK
     Dates: start: 20060627, end: 20060627
  15. PHOSLO [Concomitant]
     Indication: BLOOD PHOSPHORUS ABNORMAL
     Dosage: 1334 MG, TID
     Route: 048
     Dates: end: 20090415
  16. SENSIPAR [Concomitant]
     Indication: PHOSPHORUS METABOLISM DISORDER
     Dosage: 30 MG, QD
     Route: 048
     Dates: end: 20090415
  17. ZAROXOLYN [Concomitant]
     Dosage: 5 MG, QD
  18. BENADRYL [Concomitant]
  19. CEFEPIME [Concomitant]
  20. MAGNEVIST [Suspect]
     Indication: NUCLEAR MAGNETIC RESONANCE IMAGING
     Dosage: DAILY DOSE 40 ML
     Dates: start: 20021115, end: 20021115
  21. GADOLINIUM IN UNSPECIFIED DRUG [Suspect]
     Indication: NUCLEAR MAGNETIC RESONANCE IMAGING
     Dosage: UNK
     Dates: start: 20050614, end: 20050614
  22. LASIX [Concomitant]
     Dosage: 40 MG, UNK
  23. NIFEREX [POLYSACCHARIDE-IRON COMPLEX] [Concomitant]
     Dosage: 150 MG, BID
  24. DEMADEX [Concomitant]
     Dosage: 100 MG, QD
  25. MYCELEX [Concomitant]
     Dosage: 10 MG, TID
  26. RENAGEL [Concomitant]
  27. ULTRAVIST 150 [Concomitant]
     Indication: COMPUTERISED TOMOGRAM THORAX
     Dosage: UNK
     Dates: start: 20021231, end: 20021231
  28. MULTIHANCE [Suspect]
     Indication: NUCLEAR MAGNETIC RESONANCE IMAGING
  29. CELLCEPT [Concomitant]
     Dosage: 1000 MG, BID
  30. MONOPRIL [Concomitant]
  31. EPOGEN [Concomitant]
     Indication: ANAEMIA OF CHRONIC DISEASE
     Dosage: UNK
     Dates: start: 20020101, end: 20030101
  32. INSULIN [INSULIN] [Concomitant]
     Indication: DIABETES MELLITUS
     Dosage: UNK
     Dates: start: 20010101, end: 20020101
  33. NEPHROCAPS [FOLIC ACID,VITAMINS NOS] [Concomitant]
     Dosage: 1 CAP DAILY
     Dates: end: 20090415
  34. MAGNEVIST [Suspect]
     Indication: VENOGRAM
     Dosage: 50 ML,
     Dates: start: 20030619, end: 20030619
  35. OPTIMARK [Suspect]
     Indication: NUCLEAR MAGNETIC RESONANCE IMAGING
  36. LEXAPRO [Concomitant]
     Indication: DEPRESSION
     Dosage: 10 MG, QD
  37. HALDOL [Concomitant]
  38. NEORAL [Concomitant]
     Indication: TRANSPLANT
     Dosage: UNK
     Dates: start: 19990101, end: 20020101
  39. ULTRAVIST 150 [Concomitant]
     Indication: COMPUTERISED TOMOGRAM ABDOMEN
     Dosage: UNK
     Dates: start: 20030110, end: 20030110
  40. ULTRAVIST 150 [Concomitant]
     Indication: DIALYSIS DEVICE INSERTION
     Dosage: UNK
     Dates: start: 20030117, end: 20030117

REACTIONS (20)
  - DEFORMITY [None]
  - EMOTIONAL DISTRESS [None]
  - JOINT CONTRACTURE [None]
  - SKIN INDURATION [None]
  - MOBILITY DECREASED [None]
  - SKIN TIGHTNESS [None]
  - SKIN HYPERTROPHY [None]
  - ARTHRALGIA [None]
  - SKIN FIBROSIS [None]
  - ANXIETY [None]
  - SCAR [None]
  - MUSCULOSKELETAL STIFFNESS [None]
  - FATIGUE [None]
  - MYALGIA [None]
  - GENERAL PHYSICAL HEALTH DETERIORATION [None]
  - SKIN HYPERPIGMENTATION [None]
  - NEPHROGENIC SYSTEMIC FIBROSIS [None]
  - PAIN [None]
  - OCULAR ICTERUS [None]
  - QUALITY OF LIFE DECREASED [None]
